FAERS Safety Report 7992199-5 (Version None)
Quarter: 2011Q4

REPORT INFORMATION
  Report Type: 
  Country: None (occurrence: None)
  Receive Date: 20111219
  Receipt Date: 20110714
  Transmission Date: 20120403
  Serious: No
  Sender: FDA-Public Use
  Company Number: US-ASTRAZENECA-2011SE41133

PATIENT
  Age: 70 Year
  Sex: Male

DRUGS (3)
  1. CRESTOR [Suspect]
     Indication: HYPERCHOLESTEROLAEMIA
     Route: 048
     Dates: start: 20110630, end: 20110701
  2. CRESTOR [Suspect]
     Route: 048
     Dates: start: 20110701, end: 20110704
  3. CINRYZE [Suspect]
     Indication: HEREDITARY ANGIOEDEMA
     Route: 042

REACTIONS (7)
  - HEREDITARY ANGIOEDEMA [None]
  - ABDOMINAL DISCOMFORT [None]
  - ABDOMINAL PAIN UPPER [None]
  - FEELING ABNORMAL [None]
  - CONDITION AGGRAVATED [None]
  - ABDOMINAL PAIN [None]
  - NAUSEA [None]
